FAERS Safety Report 17812027 (Version 1)
Quarter: 2020Q2

REPORT INFORMATION
  Report Type: Spontaneous
  Country: US (occurrence: US)
  Receive Date: 20200521
  Receipt Date: 20200521
  Transmission Date: 20200714
  Serious: No
  Sender: FDA-Public Use
  Company Number: US-ASTRAZENECA-2020SE62896

PATIENT
  Age: 43 Year
  Sex: Female
  Weight: 86.6 kg

DRUGS (5)
  1. ALLEGRA-D [Concomitant]
     Active Substance: FEXOFENADINE\PSEUDOEPHEDRINE
     Indication: HYPERSENSITIVITY
     Dosage: AS REQUIRED
  2. BYDUREON [Suspect]
     Active Substance: EXENATIDE
     Indication: GLYCOSYLATED HAEMOGLOBIN INCREASED
     Route: 058
     Dates: start: 2016, end: 202002
  3. BYDUREON [Suspect]
     Active Substance: EXENATIDE
     Indication: GLYCOSYLATED HAEMOGLOBIN INCREASED
     Route: 058
     Dates: start: 2014, end: 2016
  4. SINGULAIR [Concomitant]
     Active Substance: MONTELUKAST SODIUM
  5. BYDUREON BCISE [Suspect]
     Active Substance: EXENATIDE
     Indication: GLYCOSYLATED HAEMOGLOBIN INCREASED
     Route: 058
     Dates: start: 202002

REACTIONS (6)
  - Injection site extravasation [Not Recovered/Not Resolved]
  - Product use issue [Recovered/Resolved]
  - Injection site nodule [Not Recovered/Not Resolved]
  - Injection site pain [Unknown]
  - Weight decreased [Unknown]
  - Injection site haemorrhage [Unknown]

NARRATIVE: CASE EVENT DATE: 2014
